FAERS Safety Report 8550352-6 (Version None)
Quarter: 2012Q3

REPORT INFORMATION
  Report Type: 
  Country: None (occurrence: None)
  Receive Date: 20120730
  Receipt Date: 20120724
  Transmission Date: 20120928
  Serious: Yes (Other)
  Sender: FDA-Public Use
  Company Number: US-PFIZER INC-2012179414

PATIENT
  Sex: Male
  Weight: 81.179 kg

DRUGS (1)
  1. TOVIAZ [Suspect]
     Indication: URINARY INCONTINENCE
     Dosage: 8 MG, DAILY
     Route: 048
     Dates: start: 20120712, end: 20120719

REACTIONS (6)
  - APTYALISM [None]
  - APHAGIA [None]
  - DYSPHAGIA [None]
  - DRY MOUTH [None]
  - SPEECH DISORDER [None]
  - LIP DRY [None]
